FAERS Safety Report 8545750-0 (Version None)
Quarter: 2012Q3

REPORT INFORMATION
  Report Type: 
  Country: None (occurrence: None)
  Receive Date: 20120727
  Receipt Date: 20120717
  Transmission Date: 20120928
  Serious: Yes (Death)
  Sender: FDA-Public Use
  Company Number: US-MYLANLABS-2011S1004309

PATIENT
  Age: 50 Year
  Sex: Male
  Weight: 56.7 kg

DRUGS (13)
  1. EFFEXOR XR [Concomitant]
  2. OXYBUTYNIN [Concomitant]
  3. HYDROCODONE BITARTRATE AND ACETAMINOPHEN [Concomitant]
     Dosage: 7.5MG/750MG: 1-2 Q4H PRN
     Route: 048
  4. TRIAMTERENE AND HYDROCHLOROTHIAZIDE [Concomitant]
     Indication: OEDEMA PERIPHERAL
     Dosage: 37.5MG/25MG
     Route: 048
  5. PROMETHAZINE [Concomitant]
  6. ASPIRIN [Concomitant]
  7. SEROQUEL [Concomitant]
  8. FENTANYL-100 [Suspect]
     Indication: PAIN
     Dosage: CHANGE Q3D
     Route: 062
     Dates: end: 20070906
  9. LORAZEPAM [Concomitant]
     Route: 048
  10. TEMAZEPAM [Concomitant]
     Indication: INSOMNIA
     Route: 048
  11. ATENOLOL [Concomitant]
     Route: 048
  12. ADVAIR DISKUS 100/50 [Concomitant]
     Route: 055
  13. CARISOPRODOL [Concomitant]
     Indication: MUSCLE SPASMS
     Route: 048

REACTIONS (2)
  - TOXICITY TO VARIOUS AGENTS [None]
  - OVERDOSE [None]
